FAERS Safety Report 5095192-8 (Version None)
Quarter: 2006Q3

REPORT INFORMATION
  Report Type: 
  Country: None (occurrence: None)
  Receive Date: 20060901
  Receipt Date: 20030916
  Transmission Date: 20061208
  Serious: Yes (Other)
  Sender: FDA-Public Use
  Company Number: FR-GLAXOSMITHKLINE-B0309752A

PATIENT
  Age: 16 Year
  Sex: Male
  Weight: 55 kg

DRUGS (1)
  1. BECOTIDE [Suspect]
     Indication: ASTHMA
     Route: 055

REACTIONS (4)
  - ADRENAL INSUFFICIENCY [None]
  - BLOOD CORTISOL DECREASED [None]
  - FATIGUE [None]
  - SKIN STRIAE [None]
